FAERS Safety Report 9225165 (Version 3)
Quarter: 2013Q2

REPORT INFORMATION
  Report Type: Spontaneous
  Country: BR (occurrence: BR)
  Receive Date: 20130411
  Receipt Date: 20130618
  Transmission Date: 20140414
  Serious: Yes (Disabling, Other)
  Sender: FDA-Public Use
  Company Number: BR-ASTRAZENECA-2013SE22452

PATIENT
  Age: 85 Year
  Sex: Female
  Weight: 64.5 kg

DRUGS (11)
  1. NEXIUM [Suspect]
     Indication: GASTRITIS EROSIVE
     Route: 048
  2. NEXIUM [Suspect]
     Indication: GASTRIC DISORDER
     Route: 048
  3. NEXIUM [Suspect]
     Indication: GASTRITIS EROSIVE
     Route: 048
     Dates: start: 2010, end: 201303
  4. NEXIUM [Suspect]
     Indication: GASTRIC DISORDER
     Route: 048
     Dates: start: 2010, end: 201303
  5. NEXIUM [Suspect]
     Indication: GASTRITIS EROSIVE
     Route: 048
     Dates: start: 201303, end: 2013
  6. NEXIUM [Suspect]
     Indication: GASTRIC DISORDER
     Route: 048
     Dates: start: 201303, end: 2013
  7. SELOZOK [Suspect]
     Indication: HYPERTENSION
     Route: 048
  8. ASPIRINA PREVENT [Concomitant]
     Dosage: UNKNOWN
  9. CALCIUM [Concomitant]
     Dosage: UNKNOWN
  10. APROVEL [Concomitant]
     Dosage: UNKNOWN
  11. VYTORIN [Concomitant]

REACTIONS (7)
  - Dacryostenosis acquired [Not Recovered/Not Resolved]
  - Blister [Not Recovered/Not Resolved]
  - Spinal disorder [Unknown]
  - Sinusitis [Recovered/Resolved]
  - Gastritis erosive [Recovered/Resolved]
  - Rhinitis [Not Recovered/Not Resolved]
  - Headache [Not Recovered/Not Resolved]
